FAERS Safety Report 9815098 (Version 2)
Quarter: 2014Q1

REPORT INFORMATION
  Report Type: Report from Study
  Country: DE (occurrence: DE)
  Receive Date: 20140114
  Receipt Date: 20140114
  Transmission Date: 20141002
  Serious: Yes (Hospitalization)
  Sender: FDA-Public Use
  Company Number: DE-ROCHE-1265517

PATIENT
  Sex: Male

DRUGS (6)
  1. TOCILIZUMAB [Suspect]
     Indication: RHEUMATOID ARTHRITIS
     Dosage: 624 MG, 640 MG AND 750 MG GIVEN
     Route: 065
     Dates: start: 200911, end: 201006
  2. ABATACEPT [Suspect]
     Indication: RHEUMATOID ARTHRITIS
     Route: 065
     Dates: start: 201012, end: 201012
  3. METHOTREXATE [Suspect]
     Indication: RHEUMATOID ARTHRITIS
     Dosage: 20 MG AND 10 MG GIVEN PER WEEK
     Route: 051
     Dates: start: 1989, end: 201202
  4. METHOTREXATE [Suspect]
     Route: 048
     Dates: start: 201202
  5. LEFLUNOMID [Suspect]
     Indication: RHEUMATOID ARTHRITIS
     Route: 065
     Dates: start: 201007
  6. PREDNISOLON [Concomitant]
     Indication: RHEUMATOID ARTHRITIS
     Route: 065

REACTIONS (4)
  - Bladder cancer [Unknown]
  - Urinary tract infection [Unknown]
  - Calculus ureteric [Unknown]
  - Ureteric obstruction [Unknown]
